FAERS Safety Report 8228924-8 (Version None)
Quarter: 2012Q1

REPORT INFORMATION
  Report Type: 
  Country: None (occurrence: None)
  Receive Date: 20120322
  Receipt Date: 20120315
  Transmission Date: 20120608
  Serious: Yes (Other)
  Sender: FDA-Public Use
  Company Number: DE-UCBSA-052108

PATIENT
  Sex: Female

DRUGS (4)
  1. KEPPRA [Suspect]
     Dosage: DAILY DOSE: 2750 MG
  2. KEPPRA [Suspect]
     Dosage: DAILY DOSE:3750 MG
  3. KEPPRA [Suspect]
     Dosage: DAILY DOSE: 750 MG
     Dates: start: 20110901
  4. ANTIRHEUMATICS [Concomitant]

REACTIONS (8)
  - LETHARGY [None]
  - INDIFFERENCE [None]
  - AGGRESSION [None]
  - PERSONALITY CHANGE [None]
  - EMOTIONAL POVERTY [None]
  - ILLUSION [None]
  - CEREBRAL HAEMORRHAGE [None]
  - APATHY [None]
